FAERS Safety Report 9179571 (Version 1)
Quarter: 2012Q4

REPORT INFORMATION
  Report Type: 
  Country: US (occurrence: US)
  Receive Date: 20121029
  Receipt Date: 20121029
  Transmission Date: 20130627
  Serious: No
  Sender: FDA-Public Use
  Company Number: US-AMGEN-USASP2012056369

PATIENT
  Age: 49 Year
  Sex: Female

DRUGS (1)
  1. ENBREL [Suspect]
     Indication: RHEUMATOID ARTHRITIS
     Dosage: 50 mg/ml, qwk
     Route: 058
     Dates: start: 201206

REACTIONS (6)
  - Arthropod bite [Recovered/Resolved]
  - Oedema peripheral [Unknown]
  - Pain in extremity [Unknown]
  - Malaise [Unknown]
  - Localised infection [Unknown]
  - Nasopharyngitis [Recovered/Resolved]
